FAERS Safety Report 15891416 (Version 1)
Quarter: 2019Q1

REPORT INFORMATION
  Report Type: Spontaneous
  Country: US (occurrence: US)
  Receive Date: 20190130
  Receipt Date: 20190130
  Transmission Date: 20190417
  Serious: No
  Sender: FDA-Public Use
  Company Number: US-ALLERGAN-1850030US

PATIENT
  Sex: Male
  Weight: 72.56 kg

DRUGS (3)
  1. VIIBRYD [Suspect]
     Active Substance: VILAZODONE HYDROCHLORIDE
     Dosage: 10 MG, QD
     Route: 048
     Dates: start: 201808
  2. VIIBRYD [Suspect]
     Active Substance: VILAZODONE HYDROCHLORIDE
     Indication: ANXIETY
     Dosage: 20 MG, QD
     Route: 048
     Dates: start: 201810
  3. VIIBRYD [Suspect]
     Active Substance: VILAZODONE HYDROCHLORIDE
     Indication: IRRITABLE BOWEL SYNDROME
     Dosage: 20 MG, QD
     Route: 048
     Dates: start: 201809

REACTIONS (2)
  - Off label use [Unknown]
  - Therapeutic response unexpected [Not Recovered/Not Resolved]
